FAERS Safety Report 8082996-2 (Version None)
Quarter: 2012Q1

REPORT INFORMATION
  Report Type: 
  Country: None (occurrence: None)
  Receive Date: 20120127
  Receipt Date: 20110308
  Transmission Date: 20120608
  Serious: No
  Sender: FDA-Public Use
  Company Number: US-ABBOTT-11P-163-0710539-00

PATIENT
  Sex: Female
  Weight: 102.15 kg

DRUGS (13)
  1. ZOLOFT [Concomitant]
     Indication: FIBROMYALGIA
  2. FOLIC ACID [Concomitant]
     Indication: PRODUCT USED FOR UNKNOWN INDICATION
  3. SKELAXIN [Concomitant]
     Indication: PAIN
  4. DOXEPIN [Concomitant]
     Indication: INSOMNIA
  5. AMBIEN [Concomitant]
     Indication: INSOMNIA
  6. FLEXERIL [Concomitant]
     Indication: PAIN
  7. METHOTREXATE [Concomitant]
     Indication: RHEUMATOID ARTHRITIS
  8. HUMIRA [Suspect]
     Dosage: PENS
     Dates: start: 20110302
  9. HUMIRA [Suspect]
     Indication: RHEUMATOID ARTHRITIS
     Dates: start: 20110302
  10. HUMIRA [Suspect]
     Indication: RHEUMATOID ARTHRITIS
     Dates: start: 20090101, end: 20110302
  11. CELEBREX [Concomitant]
     Indication: OSTEOARTHRITIS
  12. NEURONTIN [Concomitant]
     Indication: FIBROMYALGIA
  13. RESTASIS [Concomitant]
     Indication: DRY EYE

REACTIONS (4)
  - INJECTION SITE URTICARIA [None]
  - INJECTION SITE PRURITUS [None]
  - INJECTION SITE HAEMATOMA [None]
  - INJECTION SITE WARMTH [None]
